FAERS Safety Report 8197317-4 (Version None)
Quarter: 2012Q1

REPORT INFORMATION
  Report Type: 
  Country: None (occurrence: None)
  Receive Date: 20120309
  Receipt Date: 20120306
  Transmission Date: 20120608
  Serious: Yes (Hospitalization)
  Sender: FDA-Public Use
  Company Number: US-GILEAD-2011-0048414

PATIENT
  Sex: Male

DRUGS (5)
  1. LETAIRIS [Suspect]
     Indication: VASCULAR RESISTANCE PULMONARY INCREASED
  2. LETAIRIS [Suspect]
     Indication: PULMONARY HYPERTENSION
     Dosage: 5 MG, UNK
     Route: 048
     Dates: start: 20111129
  3. LETAIRIS [Suspect]
     Indication: PULMONARY ARTERIAL PRESSURE INCREASED
  4. LETAIRIS [Suspect]
     Indication: HAEMODYNAMIC TEST ABNORMAL
  5. REVATIO [Concomitant]

REACTIONS (2)
  - PNEUMONIA [None]
  - OEDEMA PERIPHERAL [None]
